FAERS Safety Report 10562545 (Version 1)
Quarter: 2014Q4

REPORT INFORMATION
  Report Type: Spontaneous
  Country: IT (occurrence: IT)
  Receive Date: 20141104
  Receipt Date: 20141104
  Transmission Date: 20150529
  Serious: Yes (Hospitalization)
  Sender: FDA-Public Use
  Company Number: IT-GLAXOSMITHKLINE-IT2014GSK016021

PATIENT
  Age: 67 Year
  Sex: Female

DRUGS (8)
  1. MICROSER [Concomitant]
     Dosage: 15 UNK, UNK
     Route: 048
     Dates: start: 20140101, end: 20140504
  2. SIVASTIN [Concomitant]
     Active Substance: SIMVASTATIN
     Dosage: 20 MG, UNK
     Dates: start: 20140101, end: 20140504
  3. EUTIROX [Concomitant]
     Active Substance: LEVOTHYROXINE SODIUM
     Dosage: 50 UNK, UNK
     Route: 048
     Dates: start: 20140101, end: 20140504
  4. MEDROL [Suspect]
     Active Substance: METHYLPREDNISOLONE
     Indication: PRODUCT USED FOR UNKNOWN INDICATION
     Dosage: 4 MG, QD
     Route: 048
     Dates: start: 20140101, end: 20140504
  5. PRISMA (NOS) [Concomitant]
     Dosage: 50 MG, UNK
     Dates: start: 20140101, end: 20140504
  6. LAMICTAL [Suspect]
     Active Substance: LAMOTRIGINE
     Indication: PRODUCT USED FOR UNKNOWN INDICATION
     Dosage: 100 MG, QD
     Route: 048
     Dates: start: 20140503, end: 20140504
  7. NEXIUM [Concomitant]
     Active Substance: ESOMEPRAZOLE MAGNESIUM
     Dosage: 40 MG, UNK
     Route: 048
     Dates: start: 20140101, end: 20140504
  8. ATENOLOL-CHLORTHALIDONE [Concomitant]
     Dosage: UNK
     Route: 048
     Dates: start: 20140101, end: 20140504

REACTIONS (2)
  - Hypokalaemia [Recovering/Resolving]
  - Erythema [Recovering/Resolving]

NARRATIVE: CASE EVENT DATE: 20140503
